FAERS Safety Report 10750165 (Version 8)
Quarter: 2016Q2

REPORT INFORMATION
  Report Type: Spontaneous
  Country: US (occurrence: US)
  Receive Date: 20150129
  Receipt Date: 20160607
  Transmission Date: 20160815
  Serious: Yes (Other)
  Sender: FDA-Public Use
  Company Number: US-009507513-1501USA010780

PATIENT
  Age: 16 Year
  Sex: Female
  Weight: 70.3 kg

DRUGS (1)
  1. IMPLANON [Suspect]
     Active Substance: ETONOGESTREL
     Indication: CONTRACEPTION
     Dosage: 1 ROD IN THE LEFT ARM
     Route: 030
     Dates: start: 20100728

REACTIONS (9)
  - Incorrect route of drug administration [Unknown]
  - Complication associated with device [Recovered/Resolved]
  - Menstruation irregular [Not Recovered/Not Resolved]
  - Device difficult to use [Not Recovered/Not Resolved]
  - Pain in extremity [Not Recovered/Not Resolved]
  - Incorrect drug administration duration [Unknown]
  - Device dislocation [Not Recovered/Not Resolved]
  - Device difficult to use [Recovered/Resolved]
  - Device deployment issue [Unknown]

NARRATIVE: CASE EVENT DATE: 20100728
